FAERS Safety Report 20178272 (Version 2)
Quarter: 2021Q4

REPORT INFORMATION
  Report Type: Report from Study
  Country: JP (occurrence: JP)
  Receive Date: 20211213
  Receipt Date: 20211228
  Transmission Date: 20220303
  Serious: Yes (Other)
  Sender: FDA-Public Use
  Company Number: JP-KYOWAKIRIN-2021AKK020683

PATIENT
  Age: 72 Year
  Sex: Female

DRUGS (6)
  1. PEGFILGRASTIM [Suspect]
     Active Substance: PEGFILGRASTIM
     Indication: Product used for unknown indication
     Dosage: 3.6 MG, DAY 4 OR DAY 5
     Route: 058
  2. FLUOROURACIL [Suspect]
     Active Substance: FLUOROURACIL
     Indication: Pancreatic carcinoma metastatic
     Dosage: 400 MG/M2, 1X/2 WEEKS
     Route: 040
  3. FLUOROURACIL [Suspect]
     Active Substance: FLUOROURACIL
     Dosage: 2400 MG/M2, 1X/2 WEEKS, FOR 46 H
     Route: 041
  4. OXALIPLATIN [Suspect]
     Active Substance: OXALIPLATIN
     Indication: Pancreatic carcinoma metastatic
     Dosage: 85 MG/M2, 1X/2 WEEKS, OVER 120 MIN
     Route: 041
  5. LEVOLEUCOVORIN CALCIUM [Suspect]
     Active Substance: LEVOLEUCOVORIN CALCIUM
     Indication: Pancreatic carcinoma metastatic
     Dosage: 200 MG/M2, 1X/2 WEEKS, OVER 120 MIN
     Route: 041
  6. IRINOTECAN HYDROCHLORIDE [Suspect]
     Active Substance: IRINOTECAN HYDROCHLORIDE
     Indication: Pancreatic carcinoma metastatic
     Dosage: 180 MG/M2, 1X/2 WEEKS, OVER 90 MIN
     Route: 041

REACTIONS (1)
  - Febrile neutropenia [Unknown]
